FAERS Safety Report 6262220-3 (Version None)
Quarter: 2009Q3

REPORT INFORMATION
  Report Type: 
  Country: None (occurrence: None)
  Receive Date: 20090708
  Receipt Date: 20090708
  Transmission Date: 20100115
  Serious: Yes (Other)
  Sender: FDA-Public Use
  Company Number: None

PATIENT
  Age: 45 Year
  Sex: Female
  Weight: 68.0396 kg

DRUGS (3)
  1. TOPIRAMATE [Suspect]
     Indication: MIGRAINE
     Dosage: 25 MG 1 DAILY
     Dates: start: 20090506
  2. TOPIRAMATE [Suspect]
     Indication: MIGRAINE
     Dosage: 25 MG 1 DAILY
     Dates: start: 20090516
  3. BENICAR [Concomitant]

REACTIONS (5)
  - EYE PAIN [None]
  - EYE SWELLING [None]
  - PURULENCE [None]
  - VISION BLURRED [None]
  - VISUAL ACUITY REDUCED [None]
